FAERS Safety Report 10537630 (Version 1)
Quarter: 2014Q4

REPORT INFORMATION
  Report Type: Spontaneous
  Country: US (occurrence: None)
  Receive Date: 20141022
  Receipt Date: 20141022
  Transmission Date: 20150529
  Serious: Yes (Life-Threatening, Hospitalization)
  Sender: FDA-Public Use
  Company Number: None

PATIENT
  Age: 47 Year
  Sex: Male
  Weight: 41 kg

DRUGS (20)
  1. CHOLECALCIFEROL (VITAMIN D-3) [Concomitant]
  2. (FREESTYLE LITE TEST) STRP [Concomitant]
  3. PREDNISONE (DELTASONE) [Concomitant]
  4. ISOPHANE NPH-INSULIN REGULAR (HUMAN) (HUMULIN 70/30 PEN) [Concomitant]
  5. LEVETIRACETAM (KEPPRA) [Concomitant]
  6. MULTIVITAMIN RENAL TAB [Concomitant]
  7. INSULIN LISPRO (HUMAN) (HUMALOG KWIKPEN) [Concomitant]
  8. SALINE FLUSH 0.9 % INJECTION FLUSH [Concomitant]
  9. FLUCONAZOLE (DIFLUCAN) [Concomitant]
  10. FREESTYLE LITE DEVI [Concomitant]
  11. LOPERAMIDE (IMODIUM) [Concomitant]
  12. FREESTYLE LANCETS [Concomitant]
  13. DIALYVITE MYCOPHENOLATE SODIUM (MYFORTIC) [Concomitant]
  14. PANTOPRAZOLE (PROTONIX) [Concomitant]
  15. ERTAPENEM [Suspect]
     Active Substance: ERTAPENEM
     Indication: URINARY TRACT INFECTION
     Dosage: 636MG?DAY 1, 8, 15, 22?INTRAVENOUS
     Route: 042
     Dates: start: 20140618, end: 20140621
  16. SUCRALFATE (CARAFATE) [Concomitant]
  17. TYLENOL [Concomitant]
     Active Substance: ACETAMINOPHEN
  18. CRANBERRY. [Concomitant]
     Active Substance: CRANBERRY
  19. NEEDLES + SYRINGES MISC [Concomitant]
  20. PEN NEEDLES [Concomitant]

REACTIONS (4)
  - Seizure [None]
  - Hallucination [None]
  - Blood glucose decreased [None]
  - Depressed level of consciousness [None]

NARRATIVE: CASE EVENT DATE: 20140620
